FAERS Safety Report 11016627 (Version 2)
Quarter: 2015Q2

REPORT INFORMATION
  Report Type: Spontaneous
  Country: US (occurrence: US)
  Receive Date: 20150412
  Receipt Date: 20150525
  Transmission Date: 20150821
  Serious: Yes (Other)
  Sender: FDA-Public Use
  Company Number: US-JNJFOC-20140100685

PATIENT
  Age: 31 Year
  Sex: Female
  Weight: 58.06 kg

DRUGS (2)
  1. ORTHO MICRONOR [Suspect]
     Active Substance: NORETHINDRONE
     Indication: ENDOMETRIOSIS
     Route: 048
  2. ORTHO MICRONOR [Suspect]
     Active Substance: NORETHINDRONE
     Indication: ENDOMETRIOSIS
     Route: 048
     Dates: start: 20131224, end: 20131226

REACTIONS (8)
  - Abdominal distension [Unknown]
  - Pelvic pain [Unknown]
  - Laryngitis [Not Recovered/Not Resolved]
  - Endometriosis [Unknown]
  - Product use issue [Unknown]
  - Malaise [Recovering/Resolving]
  - Headache [Unknown]
  - Diarrhoea [Unknown]

NARRATIVE: CASE EVENT DATE: 201312
